FAERS Safety Report 18940688 (Version 1)
Quarter: 2021Q1

REPORT INFORMATION
  Report Type: Spontaneous
  Country: FR (occurrence: FR)
  Receive Date: 20210225
  Receipt Date: 20210225
  Transmission Date: 20210420
  Serious: Yes (Hospitalization)
  Sender: FDA-Public Use
  Company Number: FR-PFIZER INC-2021066600

PATIENT
  Age: 34 Year
  Sex: Female

DRUGS (5)
  1. SUFENTANIL [Suspect]
     Active Substance: SUFENTANIL
     Indication: PAIN
     Dosage: 4 ML, EVERY 1 HOUR (FREQ:1 H)
     Route: 042
     Dates: start: 20210106, end: 20210111
  2. AUGMENTIN [Suspect]
     Active Substance: AMOXICILLIN\CLAVULANATE POTASSIUM
     Indication: CELLULITIS
     Dosage: 1 G EVERY 4 HOURS (FREQ:4 H)
     Route: 042
     Dates: start: 20210106, end: 20210111
  3. LOVENOX [Concomitant]
     Active Substance: ENOXAPARIN SODIUM
     Indication: THROMBOSIS PROPHYLAXIS
     Dosage: 4000 IU, 1X/DAY
     Route: 058
     Dates: start: 20210106
  4. DALACINE [Suspect]
     Active Substance: CLINDAMYCIN
     Indication: CELLULITIS
     Dosage: 600 MG, 3X/DAY
     Route: 042
     Dates: start: 20210106, end: 20210111
  5. PANTOPRAZOLE [Suspect]
     Active Substance: PANTOPRAZOLE
     Indication: PROPHYLAXIS AGAINST GASTROINTESTINAL ULCER
     Dosage: 40 MG, 1X/DAY
     Route: 042
     Dates: start: 20210106, end: 20210111

REACTIONS (1)
  - Rash maculo-papular [Recovering/Resolving]

NARRATIVE: CASE EVENT DATE: 20210111
